FAERS Safety Report 7202196-5 (Version None)
Quarter: 2010Q4

REPORT INFORMATION
  Report Type: 
  Country: None (occurrence: None)
  Receive Date: 20101229
  Receipt Date: 20101216
  Transmission Date: 20110411
  Serious: Yes (Other)
  Sender: FDA-Public Use
  Company Number: PHHY2010US65170

PATIENT
  Sex: Female
  Weight: 70.9 kg

DRUGS (1)
  1. GLEEVEC [Suspect]
     Indication: CHRONIC MYELOID LEUKAEMIA
     Dosage: 400 MG, QD
     Route: 048
     Dates: start: 20100801

REACTIONS (10)
  - ANAEMIA [None]
  - ASTHENIA [None]
  - CATARACT [None]
  - DIABETIC RETINOPATHY [None]
  - EYE HAEMORRHAGE [None]
  - LACRIMATION INCREASED [None]
  - MUSCLE SPASMS [None]
  - MYALGIA [None]
  - NEURALGIA [None]
  - VISION BLURRED [None]
